FAERS Safety Report 20966409 (Version 1)
Quarter: 2022Q2

REPORT INFORMATION
  Report Type: Spontaneous
  Country: US (occurrence: None)
  Receive Date: 20220615
  Receipt Date: 20220615
  Transmission Date: 20220721
  Serious: Yes (Hospitalization)
  Sender: FDA-Public Use
  Company Number: None

PATIENT
  Age: 84 Year
  Sex: Male
  Weight: 99.79 kg

DRUGS (19)
  1. PREDNISONE [Suspect]
     Active Substance: PREDNISONE
     Indication: Prostate cancer
     Dosage: FREQUENCY : TWICE A DAY;?
     Route: 048
     Dates: start: 202204
  2. ABIRATERONE ACETATE [Suspect]
     Active Substance: ABIRATERONE ACETATE
     Indication: Prostate cancer
     Dosage: FREQUENCY : DAILY;?
     Route: 048
     Dates: start: 202204
  3. BISACODY [Concomitant]
  4. CALCIUM CARBONATE [Concomitant]
  5. CARVEDILOL [Concomitant]
  6. OMEPRAZOLE [Concomitant]
  7. ECOTRIN [Concomitant]
     Active Substance: ASPIRIN
  8. FERROUS SULFATE [Concomitant]
  9. FUROSEMIDE [Concomitant]
     Active Substance: FUROSEMIDE
  10. LEVETIRACETAM [Concomitant]
     Active Substance: LEVETIRACETAM
  11. LOSARTAN POTASSIUM [Concomitant]
  12. LUPRON [Concomitant]
     Active Substance: LEUPROLIDE ACETATE
  13. MAGNESIUM OXIDE [Concomitant]
  14. NIFEDIPINE [Concomitant]
     Active Substance: NIFEDIPINE
  15. ROSUVASTATIN [Concomitant]
     Active Substance: ROSUVASTATIN
  16. TAMSULOSIN [Concomitant]
     Active Substance: TAMSULOSIN
  17. VITAMIN D3 [Concomitant]
     Active Substance: CHOLECALCIFEROL
  18. XGEVA [Concomitant]
     Active Substance: DENOSUMAB
  19. ZINC [Concomitant]
     Active Substance: ZINC

REACTIONS (3)
  - Urinary tract infection [None]
  - Seizure [None]
  - Fall [None]
